FAERS Safety Report 11844516 (Version 1)
Quarter: 2015Q4

REPORT INFORMATION
  Report Type: Spontaneous
  Country: US (occurrence: US)
  Receive Date: 20151217
  Receipt Date: 20151217
  Transmission Date: 20160305
  Serious: Yes (Hospitalization)
  Sender: FDA-Public Use
  Company Number: US-JNJFOC-20151211868

PATIENT
  Age: 79 Year
  Sex: Male

DRUGS (5)
  1. IMBRUVICA [Suspect]
     Active Substance: IBRUTINIB
     Indication: CHRONIC LYMPHOCYTIC LEUKAEMIA
     Route: 048
     Dates: start: 20151119, end: 20151121
  2. LANTUS [Concomitant]
     Active Substance: INSULIN GLARGINE
  3. TELMISARTAN. [Concomitant]
     Active Substance: TELMISARTAN
  4. HUMALOG [Concomitant]
     Active Substance: INSULIN LISPRO
  5. METFORMIN [Concomitant]
     Active Substance: METFORMIN HYDROCHLORIDE

REACTIONS (3)
  - Contusion [Recovered/Resolved]
  - Cyst [Unknown]
  - Urogenital haemorrhage [Recovered/Resolved]

NARRATIVE: CASE EVENT DATE: 201511
